FAERS Safety Report 4689739-0 (Version None)
Quarter: 2005Q2

REPORT INFORMATION
  Report Type: 
  Country: None (occurrence: None)
  Receive Date: 20050613
  Receipt Date: 20050613
  Transmission Date: 20051028
  Serious: Yes (Other)
  Sender: FDA-Public Use
  Company Number: None

PATIENT
  Age: 51 Year
  Sex: Female
  Weight: 76.2043 kg

DRUGS (1)
  1. PREFEST ESTRIDOL/ESTRADIOL/ ORTHOMCNEIL PHARM NORMATINATE [Suspect]
     Indication: MENOPAUSE
     Dosage: 1 EVERY DAY ORAL
     Route: 048
     Dates: start: 19990301, end: 20050612

REACTIONS (5)
  - DRUG EFFECT DECREASED [None]
  - MEDICATION TAMPERING [None]
  - MENSTRUAL DISORDER [None]
  - METRORRHAGIA [None]
  - PHARMACEUTICAL PRODUCT COMPLAINT [None]
